FAERS Safety Report 5145446-1 (Version None)
Quarter: 2006Q4

REPORT INFORMATION
  Report Type: 
  Country: None (occurrence: None)
  Receive Date: 20061101
  Receipt Date: 20061023
  Transmission Date: 20070319
  Serious: Yes (Hospitalization, Other)
  Sender: FDA-Public Use
  Company Number: BEWYE318124OCT06

PATIENT
  Sex: Male

DRUGS (2)
  1. EFFEXOR [Suspect]
  2. REDOMEX (AMITRIPTYLINE HYDROCHLORIDE, , 0) [Suspect]

REACTIONS (3)
  - ABNORMAL BEHAVIOUR [None]
  - DYSGEUSIA [None]
  - THERAPEUTIC AGENT TOXICITY [None]
